FAERS Safety Report 18656606 (Version 1)
Quarter: 2020Q4

REPORT INFORMATION
  Report Type: Spontaneous
  Country: AR (occurrence: AR)
  Receive Date: 20201224
  Receipt Date: 20201224
  Transmission Date: 20210114
  Serious: Yes (Other)
  Sender: FDA-Public Use
  Company Number: AR-PFIZER INC-2020505243

PATIENT
  Age: 72 Year
  Sex: Male

DRUGS (1)
  1. SUTENT [Suspect]
     Active Substance: SUNITINIB MALATE
     Indication: METASTATIC RENAL CELL CARCINOMA
     Dosage: 50 MG, CYCLIC (DAILY, SCHEME 4X2)
     Dates: start: 20200915, end: 202012

REACTIONS (9)
  - Groin pain [Unknown]
  - Axillary pain [Unknown]
  - Burning sensation [Recovering/Resolving]
  - Asthenia [Recovering/Resolving]
  - Facial pain [Unknown]
  - Blister [Unknown]
  - Gait inability [Unknown]
  - Hyperkeratosis [Unknown]
  - Skin disorder [Unknown]

NARRATIVE: CASE EVENT DATE: 202012
